FAERS Safety Report 24288548 (Version 2)
Quarter: 2025Q1

REPORT INFORMATION
  Report Type: Report from Study
  Country: US (occurrence: US)
  Receive Date: 20240906
  Receipt Date: 20250305
  Transmission Date: 20250409
  Serious: Yes (Other)
  Sender: ROCHE
  Company Number: US-ROCHE-10000070180

PATIENT
  Age: 74 Year
  Sex: Female

DRUGS (2)
  1. ACTEMRA [Suspect]
     Active Substance: TOCILIZUMAB
     Indication: Acute haemorrhagic leukoencephalitis
     Dosage: INJECT 162MG SUBCUTANEOUSLY EVERY 14 DAY(S) PATIENT MUST BE SEEN FOR FURTHER REFILLS
     Route: 058
  2. ACTEMRA [Suspect]
     Active Substance: TOCILIZUMAB
     Indication: Neuromyelitis optica spectrum disorder

REACTIONS (2)
  - Blindness [Unknown]
  - Off label use [Unknown]
